FAERS Safety Report 9720729 (Version 1)
Quarter: 2013Q4

REPORT INFORMATION
  Report Type: Spontaneous
  Country: US (occurrence: US)
  Receive Date: 20131129
  Receipt Date: 20131129
  Transmission Date: 20140711
  Serious: Yes (Life-Threatening, Hospitalization, Other)
  Sender: FDA-Public Use
  Company Number: PHHY2013US137134

PATIENT
  Age: 71 Year
  Sex: Male

DRUGS (2)
  1. MYFORTIC [Suspect]
     Indication: IMMUNOSUPPRESSION
  2. MYCOPHENOLATE MOFETIL [Suspect]
     Indication: IMMUNOSUPPRESSION

REACTIONS (16)
  - Upper gastrointestinal haemorrhage [Unknown]
  - Oesophageal ulcer haemorrhage [Unknown]
  - Nodule [Unknown]
  - Hypotension [Unknown]
  - Tachycardia [Unknown]
  - Dizziness [Unknown]
  - Dyspnoea exertional [Unknown]
  - Nausea [Unknown]
  - Haematemesis [Unknown]
  - Gastrointestinal haemorrhage [Unknown]
  - Faeces discoloured [Unknown]
  - Oesophageal ulcer [Unknown]
  - Haematochezia [Unknown]
  - Inflammation [Unknown]
  - Excessive granulation tissue [Unknown]
  - Haemoglobin decreased [Unknown]
